FAERS Safety Report 7214388-X (Version None)
Quarter: 2011Q1

REPORT INFORMATION
  Report Type: 
  Country: None (occurrence: None)
  Receive Date: 20110107
  Receipt Date: 20101229
  Transmission Date: 20110831
  Serious: Yes (Hospitalization)
  Sender: FDA-Public Use
  Company Number: PHHO2010LT19723

PATIENT
  Sex: Female
  Weight: 68 kg

DRUGS (5)
  1. BLINDED ALISKIREN [Suspect]
     Dosage: DOUBLE BLIND
     Route: 048
     Dates: start: 20101015
  2. BLINDED NO TREATMENT RECEIVED [Suspect]
     Dosage: DOUBLE BLIND
     Route: 048
     Dates: start: 20101015
  3. BLINDED ENALAPRIL [Suspect]
     Dosage: DOUBLE BLIND
     Route: 048
     Dates: start: 20101015
  4. COMPARATOR ENALAPRIL [Suspect]
     Indication: CARDIAC FAILURE
  5. ALISKIREN [Suspect]
     Indication: CARDIAC FAILURE

REACTIONS (5)
  - AMNESIA [None]
  - HYPOTENSION [None]
  - HEADACHE [None]
  - TRANSIENT ISCHAEMIC ATTACK [None]
  - SPEECH DISORDER [None]
